FAERS Safety Report 14053869 (Version 1)
Quarter: 2017Q4

REPORT INFORMATION
  Report Type: Spontaneous
  Country: US (occurrence: US)
  Receive Date: 20171006
  Receipt Date: 20171006
  Transmission Date: 20180321
  Serious: Yes (Other)
  Sender: FDA-Public Use
  Company Number: US-APOTEX-2017AP019764

PATIENT
  Age: 4 Year
  Sex: Male

DRUGS (14)
  1. THIORIDAZINE [Suspect]
     Active Substance: THIORIDAZINE
     Indication: DISTURBANCE IN ATTENTION
  2. GUANFACINE. [Suspect]
     Active Substance: GUANFACINE
     Indication: DISTURBANCE IN ATTENTION
  3. THIORIDAZINE [Suspect]
     Active Substance: THIORIDAZINE
     Indication: AFFECTIVE DISORDER
     Dosage: UNK
     Route: 065
  4. FLUOXETINE ORAL SOLUTION USP [Suspect]
     Active Substance: FLUOXETINE HYDROCHLORIDE
     Indication: ANXIETY
     Dosage: UNK
     Route: 065
  5. RISPERIDONE. [Suspect]
     Active Substance: RISPERIDONE
     Dosage: 6 MG, UNK
     Route: 065
  6. ARIPIPRAZOLE TABLETS [Suspect]
     Active Substance: ARIPIPRAZOLE
     Indication: ABNORMAL BEHAVIOUR
     Dosage: UNK
     Route: 065
  7. RISPERIDONE. [Suspect]
     Active Substance: RISPERIDONE
     Indication: ABNORMAL BEHAVIOUR
     Dosage: UNK
     Route: 065
  8. GUANFACINE. [Suspect]
     Active Substance: GUANFACINE
     Indication: AFFECTIVE DISORDER
     Dosage: UNK
     Route: 065
  9. QUETIAPINE FUMARATE. [Suspect]
     Active Substance: QUETIAPINE FUMARATE
     Dosage: 100 MG, TID
     Route: 065
  10. METHYLPHENIDATE. [Suspect]
     Active Substance: METHYLPHENIDATE
     Indication: DISTURBANCE IN ATTENTION
  11. AMPHETAMINE [Suspect]
     Active Substance: AMPHETAMINE
     Indication: AFFECTIVE DISORDER
     Dosage: UNK
     Route: 065
  12. AMPHETAMINE [Suspect]
     Active Substance: AMPHETAMINE
     Indication: DISTURBANCE IN ATTENTION
  13. QUETIAPINE FUMARATE. [Suspect]
     Active Substance: QUETIAPINE FUMARATE
     Indication: ABNORMAL BEHAVIOUR
     Dosage: 50 MG, TID
     Route: 065
  14. METHYLPHENIDATE. [Suspect]
     Active Substance: METHYLPHENIDATE
     Indication: AFFECTIVE DISORDER
     Dosage: UNK
     Route: 065

REACTIONS (2)
  - Therapeutic response decreased [Unknown]
  - Drug ineffective [Unknown]
